FAERS Safety Report 8615196 (Version 4)
Quarter: 2014Q1

REPORT INFORMATION
  Report Type: Spontaneous
  Country: US (occurrence: US)
  Receive Date: 20120614
  Receipt Date: 20140305
  Transmission Date: 20141002
  Serious: Yes (Life-Threatening, Hospitalization, Other)
  Sender: FDA-Public Use
  Company Number: US-ASTRAZENECA-2012SE37186

PATIENT
  Age: 63 Year
  Sex: Female
  Weight: 91.6 kg

DRUGS (40)
  1. CRESTOR [Suspect]
     Indication: BLOOD CHOLESTEROL INCREASED
     Route: 048
     Dates: end: 2012
  2. SYMBICORT PMDI [Suspect]
     Indication: ASTHMA
     Dosage: 160 AND 4.5MG TID
     Route: 055
     Dates: start: 2009
  3. SYMBICORT PMDI [Suspect]
     Indication: BRONCHITIS
     Dosage: 160 AND 4.5MG TID
     Route: 055
     Dates: start: 2009
  4. NEXIUM [Suspect]
     Indication: DYSPEPSIA
     Route: 048
     Dates: start: 2009, end: 20140110
  5. NEXIUM [Suspect]
     Indication: GASTROOESOPHAGEAL REFLUX DISEASE
     Route: 048
     Dates: start: 2009, end: 20140110
  6. POTASSIUM [Concomitant]
     Indication: SUPPORTIVE CARE
     Route: 048
  7. POTASSIUM [Concomitant]
     Indication: SUPPORTIVE CARE
     Route: 048
  8. METFORMIN [Concomitant]
     Indication: DIABETES MELLITUS
     Dosage: 7.5 BID
  9. GLIPIZIDE ER [Concomitant]
  10. COUMADIN [Concomitant]
     Indication: THROMBOSIS
     Dosage: 5MG 2.5 TUES DAILY
     Route: 048
  11. COUMADIN [Concomitant]
     Indication: THROMBOSIS
     Dosage: 7.5MG TUES THURS DAILY
     Route: 048
  12. COUMADIN [Concomitant]
     Indication: THROMBOSIS
     Route: 048
  13. LASIX [Concomitant]
     Indication: LOCAL SWELLING
     Route: 048
  14. LASIX [Concomitant]
     Indication: FLUID RETENTION
     Route: 048
  15. LASIX [Concomitant]
     Indication: LOCAL SWELLING
     Route: 048
  16. LASIX [Concomitant]
     Indication: FLUID RETENTION
     Route: 048
  17. CELEXA [Concomitant]
     Indication: DEPRESSION
     Route: 048
  18. CELEXA [Concomitant]
     Indication: ANXIETY
     Route: 048
  19. ZANAFLEX [Concomitant]
     Indication: BACK DISORDER
  20. ZANAFLEX [Concomitant]
     Indication: ARTHRITIS
  21. ZANAFLEX [Concomitant]
     Indication: BACK DISORDER
     Dosage: ONE CAPSULE BY ORAL ROUTE THREE TIMES EVENRY DAY AND THREE AT NIGHT
     Route: 048
  22. ZANAFLEX [Concomitant]
     Indication: ARTHRITIS
     Dosage: ONE CAPSULE BY ORAL ROUTE THREE TIMES EVENRY DAY AND THREE AT NIGHT
     Route: 048
  23. PROMETHAZINE [Concomitant]
     Indication: GASTRIC DISORDER
     Route: 048
  24. PROMETHAZINE [Concomitant]
     Indication: NAUSEA
     Route: 048
  25. XANAX [Concomitant]
     Indication: NERVOUSNESS
     Route: 048
  26. XANAX [Concomitant]
     Indication: DEPRESSION
     Route: 048
  27. AMBIEN [Concomitant]
     Indication: SLEEP DISORDER
  28. JANUMET XR [Concomitant]
     Indication: DIABETES MELLITUS
     Dosage: 100-1000MG HS
     Route: 048
     Dates: start: 20140117
  29. TIZANIDINE [Concomitant]
     Indication: ARTHRITIS
     Route: 048
  30. TIZANIDINE [Concomitant]
     Indication: ARTHROPATHY
     Route: 048
  31. TIZANIDINE [Concomitant]
     Indication: ARTHRITIS
     Route: 048
  32. TIZANIDINE [Concomitant]
     Indication: ARTHROPATHY
     Route: 048
  33. AMLODIPINE [Concomitant]
     Indication: BLOOD PRESSURE ABNORMAL
     Route: 048
  34. AMITIZA [Concomitant]
     Dosage: ONE CAPSULE BY ORAL ROUTE 2 TIMES EVERY DAY
     Route: 048
  35. NITROGLYCERIN [Concomitant]
     Route: 060
  36. NORVASC [Concomitant]
     Dosage: ONE TABLET BY ORAL ROUTE EVERY DAY
     Route: 048
  37. HYDROXYZINE HCL [Concomitant]
     Dosage: ONE TABLET BY ORAL ROUTE EVERY SIX HOURS
     Route: 048
  38. METFORMIN HCL [Concomitant]
     Dosage: ONE TABLET BY ORAL ROUTE EVERY DAY WITH THE EVENING MEAL
     Route: 048
  39. KLOR-CON 10 [Concomitant]
     Route: 048
  40. INVOKANA [Concomitant]
     Dosage: ONE TABLET EVERY DAY BEFORE THE FIRST MEAL OF THE DAY

REACTIONS (22)
  - Breast cancer [Recovered/Resolved]
  - Thrombosis [Recovered/Resolved with Sequelae]
  - Anxiety [Unknown]
  - Asthma [Unknown]
  - Coronary artery disease [Unknown]
  - Diverticulum [Unknown]
  - Osteoarthritis [Unknown]
  - Gastrooesophageal reflux disease [Unknown]
  - Pulmonary embolism [Unknown]
  - Diabetes mellitus [Unknown]
  - Rash [Unknown]
  - Blood glucose increased [Recovering/Resolving]
  - Mobility decreased [Unknown]
  - Dyspepsia [Not Recovered/Not Resolved]
  - Muscle spasms [Recovered/Resolved with Sequelae]
  - Hyperlipidaemia [Unknown]
  - Hypertension [Unknown]
  - Nephrolithiasis [Unknown]
  - Sleep apnoea syndrome [Unknown]
  - Peripheral vascular disorder [Unknown]
  - Intentional drug misuse [Unknown]
  - Drug dose omission [Unknown]
